FAERS Safety Report 10378683 (Version 1)
Quarter: 2014Q3

REPORT INFORMATION
  Report Type: Spontaneous
  Country: US (occurrence: None)
  Receive Date: 20140811
  Receipt Date: 20140811
  Transmission Date: 20150326
  Serious: No
  Sender: FDA-Public Use
  Company Number: None

PATIENT
  Age: 50 Year
  Sex: Female

DRUGS (5)
  1. GEMFEROZIL [Concomitant]
  2. LYRICA [Concomitant]
     Active Substance: PREGABALIN
  3. MELOXICAM. [Concomitant]
     Active Substance: MELOXICAM
  4. LORAZEPAM. [Suspect]
     Active Substance: LORAZEPAM
  5. EFFEXOR [Concomitant]
     Active Substance: VENLAFAXINE HYDROCHLORIDE

REACTIONS (2)
  - Swollen tongue [None]
  - Oropharyngeal pain [None]

NARRATIVE: CASE EVENT DATE: 20140808
